FAERS Safety Report 8480697-X (Version None)
Quarter: 2012Q3

REPORT INFORMATION
  Report Type: 
  Country: None (occurrence: None)
  Receive Date: 20120702
  Receipt Date: 20120627
  Transmission Date: 20120928
  Serious: No
  Sender: FDA-Public Use
  Company Number: US-PFIZER INC-2012155031

PATIENT
  Sex: Male
  Weight: 65.3 kg

DRUGS (4)
  1. INTERLEUKIN-2 [Concomitant]
     Dosage: UNK
  2. SUTENT [Suspect]
     Indication: RENAL CELL CARCINOMA
     Dosage: 50 MG, 1X/DAY
     Route: 048
     Dates: start: 20120312
  3. ZOMETA [Concomitant]
     Indication: BONE LESION
     Dosage: UNK, 1X/MONTH
  4. PREVACID [Concomitant]
     Dosage: UNK

REACTIONS (2)
  - DISEASE PROGRESSION [None]
  - RENAL CELL CARCINOMA [None]
